FAERS Safety Report 4551158-5 (Version None)
Quarter: 2005Q1

REPORT INFORMATION
  Report Type: 
  Country: None (occurrence: None)
  Receive Date: 20050111
  Receipt Date: 20050111
  Transmission Date: 20050727
  Serious: Yes (Other)
  Sender: FDA-Public Use
  Company Number: None

PATIENT
  Age: 21 Year
  Sex: Male
  Weight: 73.9 kg

DRUGS (1)
  1. CEFTRIAXONE [Suspect]
     Indication: PENILE ULCERATION
     Dosage: 1G,1G,INTRAMUSCULAR
     Route: 030
     Dates: start: 20041130, end: 20041130

REACTIONS (1)
  - RASH [None]
